FAERS Safety Report 7619083-0 (Version None)
Quarter: 2011Q3

REPORT INFORMATION
  Report Type: 
  Country: None (occurrence: None)
  Receive Date: 20110718
  Receipt Date: 20110711
  Transmission Date: 20111222
  Serious: Yes (Other)
  Sender: FDA-Public Use
  Company Number: JP-ASTRAZENECA-2011SE41698

PATIENT
  Sex: Female

DRUGS (2)
  1. VALSARTAN [Suspect]
     Indication: HYPERTENSION
     Route: 048
     Dates: start: 20110506, end: 20110508
  2. CANDESARTAN CILEXETIL [Suspect]
     Indication: HYPERTENSION
     Route: 048
     Dates: start: 20110130, end: 20110322

REACTIONS (3)
  - TOXIC SKIN ERUPTION [None]
  - PRURITUS [None]
  - HYPERSENSITIVITY [None]
